FAERS Safety Report 9496792 (Version 2)
Quarter: 2013Q3

REPORT INFORMATION
  Report Type: Spontaneous
  Country: FR (occurrence: FR)
  Receive Date: 20130904
  Receipt Date: 20130904
  Transmission Date: 20140515
  Serious: Yes (Disabling)
  Sender: FDA-Public Use
  Company Number: FR-SANOFI-AVENTIS-BMS17425695

PATIENT
  Age: 70 Year
  Sex: Female

DRUGS (7)
  1. COAPROVEL [Suspect]
     Indication: HYPERTENSION
     Dosage: IRBESARTAN 300 MG / HYDROCHLOTHIAZIDE 12,5MG
     Route: 048
  2. TENORMINE [Concomitant]
     Indication: HYPERTENSION
     Route: 048
  3. LERCAN [Concomitant]
     Indication: HYPERTENSION
     Route: 048
  4. ARCOXIA [Concomitant]
  5. TRAMADOL [Concomitant]
  6. FENTANYL [Concomitant]
  7. ACTISKENAN [Concomitant]

REACTIONS (1)
  - Skin ulcer [Not Recovered/Not Resolved]
